FAERS Safety Report 5330022-8 (Version None)
Quarter: 2007Q2

REPORT INFORMATION
  Report Type: 
  Country: None (occurrence: None)
  Receive Date: 20070521
  Receipt Date: 20070511
  Transmission Date: 20071010
  Serious: Yes (Hospitalization, Other)
  Sender: FDA-Public Use
  Company Number: D0052541A

PATIENT
  Age: 72 Year
  Sex: Female
  Weight: 106 kg

DRUGS (5)
  1. AVANDAMET [Suspect]
     Dosage: 1002MG TWICE PER DAY
     Route: 048
     Dates: start: 20040514
  2. GLYBURIDE [Concomitant]
     Dosage: 3.5MG TWICE PER DAY
     Route: 048
     Dates: start: 20000301
  3. METOHEXAL COMP [Concomitant]
     Indication: HYPERTENSION
     Dosage: 56.25MG TWICE PER DAY
     Route: 048
  4. ALLOPURINOL [Concomitant]
     Dosage: 300MG PER DAY
     Route: 048
  5. SIMVASTATIN [Concomitant]
     Dosage: 20MG PER DAY
     Route: 048
     Dates: start: 20040901

REACTIONS (7)
  - COMPRESSION FRACTURE [None]
  - FALL [None]
  - FOOT FRACTURE [None]
  - FRACTURE [None]
  - HUMERUS FRACTURE [None]
  - MOBILITY DECREASED [None]
  - MUSCULOSKELETAL PAIN [None]
